FAERS Safety Report 24143407 (Version 2)
Quarter: 2024Q3

REPORT INFORMATION
  Report Type: Spontaneous
  Country: KZ (occurrence: KZ)
  Receive Date: 20240726
  Receipt Date: 20240803
  Transmission Date: 20241017
  Serious: Yes (Death, Other)
  Sender: ABBVIE
  Company Number: KZ-ABBVIE-5847744

PATIENT
  Age: 55 Year
  Sex: Female

DRUGS (3)
  1. VENETOCLAX [Suspect]
     Active Substance: VENETOCLAX
     Indication: Acute myeloid leukaemia
     Dosage: FORM STRENGTH: 100 MILLIGRAM
     Route: 048
     Dates: start: 20240131, end: 20240408
  2. UNSPECIFIED INGREDIENT [Concomitant]
     Active Substance: UNSPECIFIED INGREDIENT
     Indication: Febrile neutropenia
     Dosage: 4 GRAM
     Route: 065
     Dates: start: 20240401
  3. OMEPRAZOLE [Concomitant]
     Active Substance: OMEPRAZOLE
     Indication: Abdominal pain upper
     Dosage: FORM STRENGTH: 40 MILLIGRAM
     Route: 048
     Dates: start: 20240206

REACTIONS (5)
  - Septic shock [Fatal]
  - Off label use [Unknown]
  - Febrile neutropenia [Unknown]
  - Drug ineffective [Fatal]
  - Multiple organ dysfunction syndrome [Fatal]

NARRATIVE: CASE EVENT DATE: 20240131
